FAERS Safety Report 5255490-1 (Version None)
Quarter: 2007Q1

REPORT INFORMATION
  Report Type: 
  Country: None (occurrence: None)
  Receive Date: 20070305
  Receipt Date: 20070226
  Transmission Date: 20070707
  Serious: Yes (Other)
  Sender: FDA-Public Use
  Company Number: DE-BRISTOL-MYERS SQUIBB COMPANY-13693502

PATIENT
  Age: 51 Year
  Sex: Male
  Weight: 69 kg

DRUGS (6)
  1. PRAVASIN TABS 20 MG [Suspect]
     Route: 048
     Dates: start: 20070226
  2. AMOXIHEXAL [Suspect]
     Dosage: 1000MG TABS
     Route: 048
     Dates: start: 20070226
  3. ALCOHOL [Suspect]
     Dosage: 6-8 UNKNOWN UNITS
     Route: 048
     Dates: start: 20070226
  4. CELEBREX [Suspect]
     Dosage: 200 MG TABS
     Route: 048
     Dates: start: 20070226
  5. RANITIDINE [Suspect]
     Dosage: 300 MG TABS
     Route: 048
     Dates: start: 20070226
  6. WINE [Suspect]
     Dosage: 1 BOTTLE=DOSAGE FORM
     Route: 048
     Dates: start: 20070226

REACTIONS (3)
  - BOWEL SOUNDS ABNORMAL [None]
  - OVERDOSE [None]
  - SUICIDAL IDEATION [None]
